FAERS Safety Report 10484004 (Version 1)
Quarter: 2014Q3

REPORT INFORMATION
  Report Type: Spontaneous
  Country: US (occurrence: None)
  Receive Date: 20140929
  Receipt Date: 20140929
  Transmission Date: 20150326
  Serious: Yes (Hospitalization)
  Sender: FDA-Public Use
  Company Number: None

PATIENT
  Age: 72 Year
  Sex: Male
  Weight: 171.4 kg

DRUGS (2)
  1. ERTAPENEM [Suspect]
     Active Substance: ERTAPENEM
     Indication: CELLULITIS
     Route: 042
     Dates: start: 20140428, end: 20140602
  2. ERTAPENEM [Suspect]
     Active Substance: ERTAPENEM
     Indication: LOCALISED INFECTION
     Route: 042
     Dates: start: 20140428, end: 20140602

REACTIONS (2)
  - Delirium [None]
  - Hallucination [None]

NARRATIVE: CASE EVENT DATE: 20140504
